FAERS Safety Report 18005645 (Version 1)
Quarter: 2020Q3

REPORT INFORMATION
  Report Type: Spontaneous
  Country: IT (occurrence: IT)
  Receive Date: 20200710
  Receipt Date: 20200710
  Transmission Date: 20201103
  Serious: Yes (Other)
  Sender: FDA-Public Use
  Company Number: NVSC2020IT187056

PATIENT
  Age: 48 Year
  Sex: Female

DRUGS (3)
  1. SUPRACEF (CEFIXIME) [Suspect]
     Active Substance: CEFIXIME
     Indication: CYSTITIS
     Dosage: 400 MG, QD
     Route: 048
     Dates: start: 20200428, end: 20200428
  2. BISOPROLOL FUMARATE. [Suspect]
     Active Substance: BISOPROLOL FUMARATE
     Indication: HYPERTENSION
     Dosage: UNK
     Route: 065
     Dates: start: 20200428
  3. CARDICOR [Suspect]
     Active Substance: BISOPROLOL
     Indication: TACHYCARDIA
     Dosage: 1.25 MG, QD
     Route: 048
     Dates: start: 20191017, end: 20200429

REACTIONS (1)
  - Skin reaction [Recovered/Resolved]

NARRATIVE: CASE EVENT DATE: 20200428
